FAERS Safety Report 8417675-2 (Version None)
Quarter: 2012Q2

REPORT INFORMATION
  Report Type: 
  Country: None (occurrence: None)
  Receive Date: 20120607
  Receipt Date: 20120524
  Transmission Date: 20120825
  Serious: Yes (Death, Hospitalization)
  Sender: FDA-Public Use
  Company Number: CA-ROCHE-1072438

PATIENT
  Age: 60 Year
  Sex: Female

DRUGS (9)
  1. ATIVAN [Concomitant]
     Route: 065
  2. COLACE [Concomitant]
     Route: 065
  3. HYDROMORPHONE HCL [Concomitant]
     Route: 065
  4. LYRICA [Concomitant]
     Route: 065
  5. XELODA [Suspect]
     Indication: PRODUCT USED FOR UNKNOWN INDICATION
     Route: 065
  6. SENOKOT [Concomitant]
     Route: 065
  7. ZOFRAN [Concomitant]
     Route: 065
  8. LACTULOSE [Concomitant]
     Route: 065
  9. TYKERB [Suspect]
     Indication: PRODUCT USED FOR UNKNOWN INDICATION
     Route: 048

REACTIONS (12)
  - DIARRHOEA [None]
  - LUNG INFECTION [None]
  - PAIN [None]
  - MALAISE [None]
  - NAUSEA [None]
  - PNEUMONITIS [None]
  - DECREASED APPETITE [None]
  - CONSTIPATION [None]
  - FATIGUE [None]
  - CONFUSIONAL STATE [None]
  - CYANOSIS [None]
  - VOMITING [None]
